FAERS Safety Report 6530667-3 (Version None)
Quarter: 2010Q1

REPORT INFORMATION
  Report Type: 
  Country: None (occurrence: None)
  Receive Date: 20100108
  Receipt Date: 20090112
  Transmission Date: 20100710
  Serious: Yes (Life-Threatening, Hospitalization)
  Sender: FDA-Public Use
  Company Number: A0749614A

PATIENT
  Sex: Male

DRUGS (1)
  1. LOVAZA [Suspect]
     Route: 048

REACTIONS (1)
  - PANCREATITIS [None]
